FAERS Safety Report 11337490 (Version 1)
Quarter: 2015Q3

REPORT INFORMATION
  Report Type: Spontaneous
  Country: US (occurrence: US)
  Receive Date: 20150803
  Receipt Date: 20150803
  Transmission Date: 20151125
  Serious: Yes (Other)
  Sender: FDA-Public Use
  Company Number: US-ELI_LILLY_AND_COMPANY-US200907002140

PATIENT
  Sex: Female
  Weight: 121.54 kg

DRUGS (23)
  1. PROVIGIL [Concomitant]
     Active Substance: MODAFINIL
  2. METFORMIN [Concomitant]
     Active Substance: METFORMIN HYDROCHLORIDE
  3. DICYCLOMINE [Concomitant]
     Active Substance: DICYCLOMINE HYDROCHLORIDE
  4. RESTASIS [Concomitant]
     Active Substance: CYCLOSPORINE
  5. ZYPREXA ZYDIS [Suspect]
     Active Substance: OLANZAPINE
     Indication: POST-TRAUMATIC STRESS DISORDER
     Dosage: 15 MG, EACH EVENING
     Dates: start: 2007
  6. ZYPREXA ZYDIS [Suspect]
     Active Substance: OLANZAPINE
     Dosage: 10 MG, UNK
     Dates: start: 200811, end: 20090706
  7. DIOVAN [Concomitant]
     Active Substance: VALSARTAN
  8. TOPAMAX [Concomitant]
     Active Substance: TOPIRAMATE
  9. SEROQUEL [Concomitant]
     Active Substance: QUETIAPINE FUMARATE
  10. CLOMIPRAMIN [Concomitant]
     Active Substance: CLOMIPRAMINE
  11. BYSTOLIC [Concomitant]
     Active Substance: NEBIVOLOL HYDROCHLORIDE
  12. POTASSIUM [Concomitant]
     Active Substance: POTASSIUM
  13. LAMICTAL [Concomitant]
     Active Substance: LAMOTRIGINE
  14. TRIAMTERENE. [Concomitant]
     Active Substance: TRIAMTERENE
  15. FUROSEMIDE. [Concomitant]
     Active Substance: FUROSEMIDE
  16. XALATAN [Concomitant]
     Active Substance: LATANOPROST
  17. LOVASTIN [Concomitant]
     Active Substance: LOVASTATIN
  18. LYRICA [Concomitant]
     Active Substance: PREGABALIN
  19. ZOLOFT [Concomitant]
     Active Substance: SERTRALINE HYDROCHLORIDE
  20. SINGULAIR [Concomitant]
     Active Substance: MONTELUKAST SODIUM
  21. PREVACID [Concomitant]
     Active Substance: LANSOPRAZOLE
  22. CELEBREX [Concomitant]
     Active Substance: CELECOXIB
  23. DEXLANSOPRAZOLE [Concomitant]
     Active Substance: DEXLANSOPRAZOLE

REACTIONS (4)
  - Increased appetite [Recovered/Resolved]
  - Hunger [Recovered/Resolved]
  - Weight increased [Recovering/Resolving]
  - Off label use [Recovered/Resolved]

NARRATIVE: CASE EVENT DATE: 2007
